FAERS Safety Report 13843434 (Version 3)
Quarter: 2017Q4

REPORT INFORMATION
  Report Type: Spontaneous
  Country: AR (occurrence: AR)
  Receive Date: 20170808
  Receipt Date: 20171222
  Transmission Date: 20180320
  Serious: Yes (Death, Other)
  Sender: FDA-Public Use
  Company Number: AR-RETROPHIN, INC.-2017RTN00097

PATIENT
  Age: 0 Year
  Sex: Female
  Weight: 8.04 kg

DRUGS (1)
  1. CHOLBAM [Suspect]
     Active Substance: CHOLIC ACID
     Indication: INBORN ERROR IN PRIMARY BILE ACID SYNTHESIS
     Dosage: 100 MG, 1X/DAY
     Dates: start: 20170508, end: 20170723

REACTIONS (12)
  - Encephalopathy [Unknown]
  - Hepatic function abnormal [Unknown]
  - Beta haemolytic streptococcal infection [Unknown]
  - Acute respiratory distress syndrome [Fatal]
  - Blood bilirubin increased [Unknown]
  - Ear infection [Unknown]
  - Escherichia test positive [Unknown]
  - Pneumonia [Unknown]
  - Ascites [Unknown]
  - Bilirubin conjugated increased [Unknown]
  - Hyperammonaemia [Unknown]
  - Septic shock [Fatal]

NARRATIVE: CASE EVENT DATE: 2017
